FAERS Safety Report 4740433-7 (Version None)
Quarter: 2005Q3

REPORT INFORMATION
  Report Type: 
  Country: None (occurrence: None)
  Receive Date: 20050729
  Receipt Date: 20050509
  Transmission Date: 20060218
  Serious: Yes (Other)
  Sender: FDA-Public Use
  Company Number: COT_0065_2005

PATIENT
  Age: 60 Year
  Sex: Male
  Weight: 74.3899 kg

DRUGS (11)
  1. VENTAVIS [Suspect]
     Indication: PULMONARY HYPERTENSION
     Dosage: 45 MCG QDAY IH
     Route: 055
     Dates: start: 20030503
  2. TRACLEER [Concomitant]
  3. GLUCOSAMINE [Concomitant]
  4. COUMADIN [Concomitant]
  5. ZETIA [Concomitant]
  6. DIOVAN HCT [Concomitant]
  7. TOPROL-XL [Concomitant]
  8. DIGOXIN [Concomitant]
  9. MULTI-VITAMINS [Concomitant]
  10. ASCORBIC ACID [Concomitant]
  11. OXYGEN [Concomitant]

REACTIONS (5)
  - ASTHENIA [None]
  - CHEST PAIN [None]
  - FLUSHING [None]
  - HEADACHE [None]
  - HYPOTENSION [None]
